FAERS Safety Report 12692224 (Version 2)
Quarter: 2016Q4

REPORT INFORMATION
  Report Type: Spontaneous
  Country: IT (occurrence: IT)
  Receive Date: 20160828
  Receipt Date: 20161010
  Transmission Date: 20170207
  Serious: Yes (Other)
  Sender: FDA-Public Use
  Company Number: PHHY2016IT117583

PATIENT
  Age: 22 Year
  Sex: Female

DRUGS (2)
  1. TEGRETOL [Suspect]
     Active Substance: CARBAMAZEPINE
     Indication: AFFECTIVE DISORDER
     Dosage: 400 MG, BID
     Route: 048
     Dates: start: 20160806, end: 20160815
  2. RIVOTRIL [Concomitant]
     Active Substance: CLONAZEPAM
     Indication: ANXIETY
     Dosage: 20 GTT, UNK
     Route: 048
     Dates: start: 20160803, end: 20160819

REACTIONS (13)
  - Papule [Recovered/Resolved]
  - Pruritus [Recovered/Resolved]
  - Laryngeal oedema [Recovered/Resolved]
  - Cough [Unknown]
  - Urticaria [Recovered/Resolved]
  - Pain [Unknown]
  - Lip oedema [Recovered/Resolved]
  - Product use issue [Recovered/Resolved]
  - Dysphagia [Unknown]
  - Rash [Unknown]
  - Malaise [Unknown]
  - Erythema [Recovered/Resolved]
  - Chills [Unknown]

NARRATIVE: CASE EVENT DATE: 20160815
